FAERS Safety Report 20991011 (Version 1)
Quarter: 2022Q2

REPORT INFORMATION
  Report Type: Spontaneous
  Country: US (occurrence: US)
  Receive Date: 20220622
  Receipt Date: 20220622
  Transmission Date: 20220721
  Serious: Yes (Hospitalization)
  Sender: FDA-Public Use
  Company Number: US-KAMADA LIMITED-2022-KAM-US000111

PATIENT

DRUGS (19)
  1. KEDRAB [Suspect]
     Active Substance: HUMAN RABIES VIRUS IMMUNE GLOBULIN
     Indication: Animal bite
     Dosage: 20 UNITS PER KG (1200 UNITS)
     Dates: start: 20220613
  2. ACETAMINOPHEN [Concomitant]
     Active Substance: ACETAMINOPHEN
     Indication: Pain
     Dosage: 650MG PO Q6H
     Route: 065
  3. UNASYN [Concomitant]
     Active Substance: AMPICILLIN SODIUM\SULBACTAM SODIUM
     Dosage: 3 G, Q6HR
     Route: 042
     Dates: start: 20220610, end: 20220617
  4. LOVENOX [Concomitant]
     Active Substance: ENOXAPARIN SODIUM
     Dosage: 30 MG, DAILY
     Route: 065
     Dates: start: 20220612
  5. CULTURELLE [Concomitant]
     Active Substance: LACTOBACILLUS RHAMNOSUS
     Dosage: 10 BILLION UNITS
     Route: 065
     Dates: start: 20220611
  6. ONDANSETRON [Concomitant]
     Active Substance: ONDANSETRON
     Indication: Nausea
     Dosage: 4 MG, Q6HR
     Route: 042
     Dates: start: 20220611
  7. PERCOCET [Concomitant]
     Active Substance: ACETAMINOPHEN\OXYCODONE HYDROCHLORIDE
     Indication: Pain
     Dosage: 5/325 2 TAB PO Q4H
     Route: 048
     Dates: start: 20220613, end: 20220614
  8. PANTOPRAZOLE [Concomitant]
     Active Substance: PANTOPRAZOLE
     Dosage: 40 MG, QD
     Route: 065
     Dates: start: 20220611
  9. IMOVAX [Concomitant]
     Active Substance: RABIES VACCINE\RABIES VIRUS STRAIN PM-1503-3M ANTIGEN (PROPIOLACTONE INACTIVATED)
     Dosage: 1 ML
     Route: 065
     Dates: start: 20220613
  10. SODIUM CHLORIDE [Concomitant]
     Active Substance: SODIUM CHLORIDE
     Dosage: UNK
     Route: 065
  11. TRAMADOL [Concomitant]
     Active Substance: TRAMADOL
     Dosage: 50 MG Q6HR
     Route: 048
  12. VENLAFAXINE [Concomitant]
     Active Substance: VENLAFAXINE HYDROCHLORIDE
     Dosage: 112.5 MG, QD
     Route: 048
     Dates: start: 20220611
  13. FENTANYL [Concomitant]
     Active Substance: FENTANYL
     Dosage: 100 MCG
     Route: 065
  14. HYDROMORPHONE [Concomitant]
     Active Substance: HYDROMORPHONE
     Dosage: 0.5 MG ONE TIME
     Route: 065
  15. LIDOCAINE [Concomitant]
     Active Substance: LIDOCAINE
     Dosage: 5ML
     Route: 065
  16. MIDAZOLAM [Concomitant]
     Active Substance: MIDAZOLAM
     Dosage: 4 MG
     Route: 065
  17. PROPOFOL [Concomitant]
     Active Substance: PROPOFOL
     Dosage: 200 MG
     Route: 065
  18. ROCURONIUM [Concomitant]
     Active Substance: ROCURONIUM BROMIDE
     Dosage: 50 MG
     Route: 065
  19. SUGAMMADEX [Concomitant]
     Active Substance: SUGAMMADEX
     Dosage: 200 MG

REACTIONS (2)
  - Movement disorder [Recovering/Resolving]
  - Pain in extremity [Recovering/Resolving]

NARRATIVE: CASE EVENT DATE: 20220613
